FAERS Safety Report 5505549-6 (Version None)
Quarter: 2007Q4

REPORT INFORMATION
  Report Type: 
  Country: None (occurrence: None)
  Receive Date: 20071102
  Receipt Date: 20071030
  Transmission Date: 20080405
  Serious: Yes (Other)
  Sender: FDA-Public Use
  Company Number: JP-ASTRAZENECA-2007AP06611

PATIENT
  Age: 30 Year
  Sex: Male

DRUGS (2)
  1. TENORMIN [Suspect]
     Dosage: 60 TABLETS
     Route: 048
     Dates: start: 20071017
  2. UNKNOWNDRUG [Suspect]
     Dosage: DOSE UNKNOWN
     Route: 048
     Dates: start: 20071017

REACTIONS (2)
  - OVERDOSE [None]
  - SUICIDE ATTEMPT [None]
